FAERS Safety Report 14477026 (Version 1)
Quarter: 2018Q1

REPORT INFORMATION
  Report Type: Spontaneous
  Country: US (occurrence: US)
  Receive Date: 20180201
  Receipt Date: 20180201
  Transmission Date: 20180509
  Serious: No
  Sender: FDA-Public Use
  Company Number: US-EXELIXIS-CABO-17009469

PATIENT
  Sex: Male

DRUGS (3)
  1. TRAMADOL. [Concomitant]
     Active Substance: TRAMADOL
     Indication: PAIN
  2. CABOMETYX [Suspect]
     Active Substance: CABOZANTINIB S-MALATE
     Indication: PRODUCT USED FOR UNKNOWN INDICATION
     Dosage: UNK MG, QD
     Route: 048
  3. INVOKANA [Concomitant]
     Active Substance: CANAGLIFLOZIN
     Indication: BLOOD GLUCOSE ABNORMAL

REACTIONS (2)
  - Fungal infection [Unknown]
  - Neuralgia [Not Recovered/Not Resolved]
